APPROVED DRUG PRODUCT: UPNEEQ
Active Ingredient: OXYMETAZOLINE HYDROCHLORIDE
Strength: 0.1%
Dosage Form/Route: SOLUTION/DROPS;OPHTHALMIC
Application: N212520 | Product #001
Applicant: RVL PHARMACEUTICALS INC
Approved: Jul 8, 2020 | RLD: Yes | RS: Yes | Type: RX

PATENTS:
Patent 11324722 | Expires: Dec 16, 2039
Patent 8357714 | Expires: Aug 26, 2031
Patent 9867808 | Expires: Aug 26, 2031
Patent 10940138 | Expires: Dec 16, 2039
Patent 10799481 | Expires: Dec 16, 2039
Patent 11701343 | Expires: Dec 16, 2039
Patent 10912765 | Expires: Aug 26, 2031
Patent 10898573 | Expires: Dec 16, 2039
Patent 10814001 | Expires: Dec 16, 2039
Patent 11311515 | Expires: Dec 16, 2039
Patent 11541036 | Expires: Dec 16, 2039
Patent 11103482 | Expires: Dec 16, 2039